FAERS Safety Report 7211677-X (Version None)
Quarter: 2011Q1

REPORT INFORMATION
  Report Type: 
  Country: None (occurrence: None)
  Receive Date: 20110105
  Receipt Date: 20101231
  Transmission Date: 20110831
  Serious: Yes (Death)
  Sender: FDA-Public Use
  Company Number: US-ASTRAZENECA-2011SE00295

PATIENT
  Age: 45 Year
  Sex: Male

DRUGS (6)
  1. LISINOPRIL [Suspect]
     Route: 048
  2. SKELETAL MUSCLE RELAXANT [Suspect]
     Route: 048
  3. FLUOROQUINOLONE [Suspect]
     Route: 048
  4. OXYCODONE HCL [Suspect]
     Route: 048
  5. DIAZEPAM [Suspect]
     Route: 048
  6. ALPRAZOLAM [Suspect]
     Route: 048

REACTIONS (4)
  - TOXICITY TO VARIOUS AGENTS [None]
  - CARDIO-RESPIRATORY ARREST [None]
  - DRUG ABUSE [None]
  - INTENTIONAL DRUG MISUSE [None]
